APPROVED DRUG PRODUCT: FONDAPARINUX SODIUM
Active Ingredient: FONDAPARINUX SODIUM
Strength: 2.5MG/0.5ML
Dosage Form/Route: SOLUTION;SUBCUTANEOUS
Application: A218312 | Product #001
Applicant: BRIGHTGENE BIO-MEDICAL TECHNOLOGY CO LTD
Approved: Dec 18, 2024 | RLD: No | RS: No | Type: DISCN